FAERS Safety Report 20839799 (Version 1)
Quarter: 2022Q2

REPORT INFORMATION
  Report Type: Spontaneous
  Country: US (occurrence: US)
  Receive Date: 20220517
  Receipt Date: 20220517
  Transmission Date: 20220721
  Serious: Yes (Hospitalization)
  Sender: FDA-Public Use
  Company Number: US-BAYER-2022A066111

PATIENT
  Age: 47 Year
  Sex: Female

DRUGS (1)
  1. KYLEENA [Suspect]
     Active Substance: LEVONORGESTREL
     Indication: Heavy menstrual bleeding
     Dosage: 17.5?G/DAY
     Route: 015
     Dates: start: 20211105

REACTIONS (4)
  - Gallbladder disorder [None]
  - Heavy menstrual bleeding [None]
  - Menstruation irregular [Not Recovered/Not Resolved]
  - Herpes zoster [None]

NARRATIVE: CASE EVENT DATE: 20211201
